FAERS Safety Report 19317019 (Version 3)
Quarter: 2021Q3

REPORT INFORMATION
  Report Type: Spontaneous
  Country: JP (occurrence: JP)
  Receive Date: 20210527
  Receipt Date: 20210808
  Transmission Date: 20211014
  Serious: Yes (Death)
  Sender: FDA-Public Use
  Company Number: JP-JNJFOC-20210552317

PATIENT
  Age: 39 Year
  Sex: Male

DRUGS (3)
  1. REMICADE [Suspect]
     Active Substance: INFLIXIMAB
     Dosage: DRUG START PERIOD: 5  (YEARS)
     Route: 042
     Dates: start: 20120504
  2. REMICADE [Suspect]
     Active Substance: INFLIXIMAB
     Dosage: DRUG START PERIOD: 5  (YEARS)
     Route: 042
  3. REMICADE [Suspect]
     Active Substance: INFLIXIMAB
     Indication: CROHN^S DISEASE
     Dosage: DRUG START PERIOD: 5  (YEARS)
     Route: 042
     Dates: start: 2007

REACTIONS (1)
  - Diffuse large B-cell lymphoma [Fatal]

NARRATIVE: CASE EVENT DATE: 20120502
